FAERS Safety Report 4351062-1 (Version None)
Quarter: 2004Q2

REPORT INFORMATION
  Report Type: 
  Country: None (occurrence: None)
  Receive Date: 20040429
  Receipt Date: 20030728
  Transmission Date: 20050107
  Serious: Yes (Hospitalization)
  Sender: FDA-Public Use
  Company Number: 2003UW01884

PATIENT
  Age: 43 Year
  Sex: Female
  Weight: 56.6996 kg

DRUGS (1)
  1. ZOMIG [Suspect]
     Indication: MIGRAINE
     Dosage: 5 MG PO
     Route: 048
     Dates: start: 20020621, end: 20020622

REACTIONS (2)
  - ARTERIOSPASM CORONARY [None]
  - CHEST PAIN [None]
